FAERS Safety Report 4606930-X (Version None)
Quarter: 2005Q1

REPORT INFORMATION
  Report Type: 
  Country: None (occurrence: None)
  Receive Date: 20050314
  Receipt Date: 20050307
  Transmission Date: 20050727
  Serious: Yes (Life-Threatening, Hospitalization)
  Sender: FDA-Public Use
  Company Number: PHNU2005DE01244

PATIENT
  Sex: Male

DRUGS (1)
  1. CO-DIOVAN [Suspect]
     Indication: HYPERTENSION
     Dates: start: 20040101

REACTIONS (4)
  - CHOKING [None]
  - DYSPHAGIA [None]
  - DYSPHONIA [None]
  - OROPHARYNGEAL SWELLING [None]
